FAERS Safety Report 15489071 (Version 1)
Quarter: 2018Q4

REPORT INFORMATION
  Report Type: Spontaneous
  Country: US (occurrence: US)
  Receive Date: 20181004
  Receipt Date: 20181004
  Transmission Date: 20190205
  Serious: No
  Sender: FDA-Public Use
  Company Number: None

PATIENT
  Age: 70 Year
  Sex: Female

DRUGS (1)
  1. CAPECITABINE TAB 500MG [Suspect]
     Active Substance: CAPECITABINE
     Dates: start: 201410, end: 201501

REACTIONS (3)
  - Therapy cessation [None]
  - Adverse drug reaction [None]
  - Disease progression [None]

NARRATIVE: CASE EVENT DATE: 20181002
